FAERS Safety Report 11092074 (Version 2)
Quarter: 2015Q2

REPORT INFORMATION
  Report Type: Report from Study
  Country: BR (occurrence: BR)
  Receive Date: 20150505
  Receipt Date: 20150527
  Transmission Date: 20150821
  Serious: Yes (Other)
  Sender: FDA-Public Use
  Company Number: PHHY2015BR053807

PATIENT
  Sex: Female

DRUGS (9)
  1. ACLASTA [Suspect]
     Active Substance: ZOLEDRONIC ACID
     Indication: OSTEOPOROSIS
     Dosage: 1 AMPOULE (5 MG/100 ML) STARTED ONE YEAR AGO
     Route: 042
  2. GALVUS [Concomitant]
     Active Substance: VILDAGLIPTIN
     Indication: DIABETES MELLITUS
     Dosage: 50 MG, QD DAILY AT NIGHT (STARTED ONE MONTH AGO)
     Route: 048
  3. DIPROSPAN [Concomitant]
     Active Substance: BETAMETHASONE DIPROPIONATE\BETAMETHASONE SODIUM PHOSPHATE
     Indication: PAIN
     Dosage: 1 DF, (1 AMPOULE DAILY, ONLY WHEN SHE HAD MUCH PAIN) STARTED 21 DAYS AGO
     Route: 030
  4. OMEPRAZOLE. [Concomitant]
     Active Substance: OMEPRAZOLE
     Indication: PRODUCT USED FOR UNKNOWN INDICATION
     Dosage: 1 DF, (20 MG, DAILY IN THE MORNING)
     Route: 048
  5. INDIPAM//INDAPAMIDE [Concomitant]
     Indication: POLYURIA
     Dosage: 1.5 MG, QD DAILY IN THE MORNING (STARTED MANY YEARS AGO)
     Route: 048
  6. DIPROSPAN [Concomitant]
     Active Substance: BETAMETHASONE DIPROPIONATE\BETAMETHASONE SODIUM PHOSPHATE
     Dosage: UNK
     Route: 030
  7. DIAMICRON [Concomitant]
     Active Substance: GLICLAZIDE
     Indication: DIABETES MELLITUS
     Dosage: 2 DF, (2 TABLETS DAILY IN THE MORNING)
     Route: 048
  8. MIRTAX//CYCLOBENZAPRINE HYDROCHLORIDE [Concomitant]
     Indication: PAIN
     Dosage: 10 MG, QD (STARTED 2 MONTHS AGO)
     Route: 048
  9. DIPROSPAN [Concomitant]
     Active Substance: BETAMETHASONE DIPROPIONATE\BETAMETHASONE SODIUM PHOSPHATE
     Dosage: UNK
     Route: 030

REACTIONS (3)
  - Arthritis [Not Recovered/Not Resolved]
  - Osteoarthritis [Not Recovered/Not Resolved]
  - Diabetes mellitus inadequate control [Not Recovered/Not Resolved]
